FAERS Safety Report 7283564-2 (Version None)
Quarter: 2011Q1

REPORT INFORMATION
  Report Type: 
  Country: None (occurrence: None)
  Receive Date: 20110209
  Receipt Date: 20110207
  Transmission Date: 20110831
  Serious: Yes (Death, Hospitalization)
  Sender: FDA-Public Use
  Company Number: A0779245A

PATIENT
  Age: 47 Year
  Sex: Male
  Weight: 122.7 kg

DRUGS (4)
  1. GEMFIBROZIL [Concomitant]
  2. AVANDIA [Suspect]
     Indication: DIABETES MELLITUS
     Dosage: 4MG TWICE PER DAY
     Route: 048
     Dates: start: 20060301, end: 20070504
  3. ALTACE [Concomitant]
  4. GLUCOTROL [Concomitant]

REACTIONS (2)
  - MYOCARDIAL INFARCTION [None]
  - CARDIAC ARREST [None]
